FAERS Safety Report 11465241 (Version 3)
Quarter: 2015Q4

REPORT INFORMATION
  Report Type: Spontaneous
  Country: US (occurrence: US)
  Receive Date: 20150907
  Receipt Date: 20151023
  Transmission Date: 20160304
  Serious: No
  Sender: FDA-Public Use
  Company Number: US-009507513-1509USA001948

PATIENT

DRUGS (1)
  1. NEXPLANON [Suspect]
     Active Substance: ETONOGESTREL
     Dosage: 68 MG, UNK
     Route: 059
     Dates: start: 2013, end: 20150901

REACTIONS (2)
  - Device difficult to use [Recovered/Resolved]
  - Implant site fibrosis [Unknown]

NARRATIVE: CASE EVENT DATE: 20150901
